FAERS Safety Report 4840617-3 (Version None)
Quarter: 2005Q4

REPORT INFORMATION
  Report Type: 
  Country: None (occurrence: None)
  Receive Date: 20051129
  Receipt Date: 20051129
  Transmission Date: 20060501
  Serious: No
  Sender: FDA-Public Use
  Company Number: None

PATIENT
  Age: 61 Year
  Sex: Male
  Weight: 68.0396 kg

DRUGS (2)
  1. CYPHER CARDIAC STENT [Suspect]
     Indication: MYOCARDIAL ISCHAEMIA
     Dosage: STENT PROX CIRCUNFLEX
     Dates: start: 20051110
  2. PLAVIX [Suspect]
     Indication: MYOCARDIAL ISCHAEMIA
     Dosage: 75 MG QD PO
     Route: 048
     Dates: start: 20051110

REACTIONS (2)
  - RASH MORBILLIFORM [None]
  - RASH PRURITIC [None]
